FAERS Safety Report 9058851 (Version 3)
Quarter: 2013Q1

REPORT INFORMATION
  Report Type: Report from Study
  Country: DE (occurrence: DE)
  Receive Date: 20130204
  Receipt Date: 20130306
  Transmission Date: 20140127
  Serious: Yes (Hospitalization, Other)
  Sender: FDA-Public Use
  Company Number: DE-ROCHE-1186701

PATIENT
  Sex: Male

DRUGS (3)
  1. RANIBIZUMAB [Suspect]
     Indication: AGE-RELATED MACULAR DEGENERATION
     Route: 050
     Dates: start: 20120802
  2. RANIBIZUMAB [Suspect]
     Route: 050
     Dates: start: 20120831
  3. RANIBIZUMAB [Suspect]
     Dosage: DATE OF LAST DOSE PRIOR TO SAE: 24/SEP/2012
     Route: 050
     Dates: start: 20120924

REACTIONS (3)
  - Retinal haemorrhage [Unknown]
  - Retinal detachment [Unknown]
  - Inappropriate schedule of drug administration [Unknown]
